FAERS Safety Report 6289347-4 (Version None)
Quarter: 2009Q3

REPORT INFORMATION
  Report Type: 
  Country: None (occurrence: None)
  Receive Date: 20090728
  Receipt Date: 20090728
  Transmission Date: 20100115
  Serious: Yes (Other)
  Sender: FDA-Public Use
  Company Number: None

PATIENT
  Age: 49 Year
  Sex: Female
  Weight: 65.7716 kg

DRUGS (2)
  1. METOCLOPRAMIDE [Suspect]
     Indication: GALLBLADDER DISORDER
     Dosage: 1 TAB 3-4 TIMES DAILY PO
     Route: 048
     Dates: start: 20090606, end: 20090611
  2. METOCLOPRAMIDE [Suspect]
     Indication: GASTRIC DISORDER
     Dosage: 1 TAB 3-4 TIMES DAILY PO
     Route: 048
     Dates: start: 20090606, end: 20090611

REACTIONS (4)
  - HYPOAESTHESIA EYE [None]
  - HYPOAESTHESIA FACIAL [None]
  - INTRANASAL HYPOAESTHESIA [None]
  - PARAESTHESIA [None]
